FAERS Safety Report 11104166 (Version 1)
Quarter: 2015Q2

REPORT INFORMATION
  Report Type: Spontaneous
  Country: CA (occurrence: None)
  Receive Date: 20150507
  Receipt Date: 20150507
  Transmission Date: 20150821
  Serious: Yes (Other)
  Sender: FDA-Public Use
  Company Number: FK201502075

PATIENT
  Sex: Female
  Weight: 69 kg

DRUGS (1)
  1. IRINOTECAN [Suspect]
     Active Substance: IRINOTECAN
     Indication: PRODUCT USED FOR UNKNOWN INDICATION
     Dosage: 250 MG, INTRAVENOUS (NOT OTHERWISE SPECIFIED)
     Route: 042

REACTIONS (3)
  - Speech disorder [None]
  - Tongue disorder [None]
  - Blood pressure decreased [None]
